FAERS Safety Report 5670816-2 (Version None)
Quarter: 2008Q1

REPORT INFORMATION
  Report Type: 
  Country: None (occurrence: None)
  Receive Date: 20080317
  Receipt Date: 20080317
  Transmission Date: 20080703
  Serious: No
  Sender: FDA-Public Use
  Company Number: None

PATIENT
  Age: 23 Year
  Sex: Male
  Weight: 87.0906 kg

DRUGS (1)
  1. EFFEXOR XR [Suspect]
     Indication: DEPRESSION
     Dosage: 350MG ONCE DAILY PO
     Route: 048
     Dates: start: 20040628, end: 20050205

REACTIONS (2)
  - ABDOMINAL PAIN [None]
  - FLATULENCE [None]
